FAERS Safety Report 6216619-1 (Version None)
Quarter: 2009Q2

REPORT INFORMATION
  Report Type: 
  Country: None (occurrence: None)
  Receive Date: 20090605
  Receipt Date: 20090527
  Transmission Date: 20091009
  Serious: Yes (Other)
  Sender: FDA-Public Use
  Company Number: PHHY2009CA18314

PATIENT
  Sex: Female

DRUGS (5)
  1. ACLASTA [Suspect]
     Indication: OSTEOPOROSIS
     Dosage: 5 MG (SINGLE DOSE)
     Route: 042
     Dates: start: 20080509
  2. THYROXIN [Concomitant]
     Dosage: 50 UG/DAY
  3. ATORVASTATIN CALCIUM [Concomitant]
     Dosage: 10 MG/DAY
  4. CALCIUM [Concomitant]
  5. VITAMIN D [Concomitant]

REACTIONS (5)
  - ASTHENIA [None]
  - DEPRESSION [None]
  - FATIGUE [None]
  - GINGIVAL PAIN [None]
  - JAW DISORDER [None]
